FAERS Safety Report 15179048 (Version 1)
Quarter: 2018Q3

REPORT INFORMATION
  Report Type: Report from Study
  Country: JP (occurrence: JP)
  Receive Date: 20180723
  Receipt Date: 20180723
  Transmission Date: 20181010
  Serious: Yes (Death)
  Sender: FDA-Public Use
  Company Number: JP-BEH-2018093005

PATIENT
  Age: 57 Year
  Sex: Male
  Weight: 75 kg

DRUGS (8)
  1. INOVAN                             /00360702/ [Suspect]
     Active Substance: DOPAMINE HYDROCHLORIDE
     Indication: SURGERY
     Dosage: UNK
     Route: 065
     Dates: end: 20180121
  2. DOBUPUM [Suspect]
     Active Substance: DOBUTAMINE HYDROCHLORIDE
     Indication: SURGERY
     Dosage: UNK
     Route: 065
     Dates: end: 20180121
  3. HANP [Suspect]
     Active Substance: CARPERITIDE
     Indication: SURGERY
     Dosage: UNK
     Route: 065
     Dates: end: 20180121
  4. ANCARON [Concomitant]
     Active Substance: AMIODARONE HYDROCHLORIDE
     Indication: SURGERY
     Dosage: UNK
     Route: 065
     Dates: end: 20180121
  5. BERIPLEX P/N [Suspect]
     Active Substance: COAGULATION FACTOR IX HUMAN\COAGULATION FACTOR VII HUMAN\COAGULATION FACTOR X HUMAN\PROTEIN C\PROTEIN S HUMAN\PROTHROMBIN
     Indication: SURGERY
     Dosage: 2000 IU, UNK
     Route: 042
     Dates: start: 20180117
  6. KAYTWO N [Concomitant]
     Active Substance: MENATETRENONE
     Indication: PROCOAGULANT THERAPY
     Dosage: 20 MG, UNK
     Route: 065
     Dates: start: 20180116, end: 20180116
  7. BOSMIN                             /00003901/ [Suspect]
     Active Substance: EPINEPHRINE
     Indication: SURGERY
     Dosage: UNK
     Route: 065
     Dates: end: 20180121
  8. ONOACT [Concomitant]
     Active Substance: LANDIOLOL HYDROCHLORIDE
     Indication: SURGERY
     Dosage: UNK
     Route: 065
     Dates: end: 20180121

REACTIONS (2)
  - Shock [Fatal]
  - Low cardiac output syndrome [Fatal]
